FAERS Safety Report 5524684-X (Version None)
Quarter: 2007Q4

REPORT INFORMATION
  Report Type: 
  Country: None (occurrence: None)
  Receive Date: 20071123
  Receipt Date: 20071114
  Transmission Date: 20080405
  Serious: Yes (Disabling, Other)
  Sender: FDA-Public Use
  Company Number: JP-PFIZER INC-2007045428

PATIENT
  Sex: Female

DRUGS (32)
  1. CEFPODOXIME PROXETIL [Suspect]
     Indication: NASOPHARYNGITIS
     Route: 048
     Dates: start: 20030329, end: 20030404
  2. CEFPODOXIME PROXETIL [Suspect]
     Route: 048
  3. MEDICON [Suspect]
     Route: 048
     Dates: start: 20030329, end: 20030404
  4. MEDICON [Suspect]
     Route: 048
  5. PL GRAN. [Suspect]
     Route: 048
     Dates: start: 20030329, end: 20030404
  6. PL GRAN. [Suspect]
     Route: 048
  7. LOXOPROFEN SODIUM [Suspect]
     Route: 048
     Dates: start: 20030329, end: 20030404
  8. LOXOPROFEN SODIUM [Suspect]
     Route: 048
  9. AMBROXOL HYDROCHLORIDE [Concomitant]
     Dosage: TEXT:3 DF
     Route: 048
  10. ALESION [Concomitant]
     Dosage: TEXT:1 DF
     Route: 048
  11. ISODINE [Concomitant]
     Dosage: TEXT:ON PHYSICIAN'S ORDERS
  12. SYMMETREL [Concomitant]
     Route: 048
  13. ALL OTHER THERAPEUTIC PRODUCTS [Concomitant]
     Dosage: TEXT:1DF
     Route: 042
     Dates: start: 20030329, end: 20030329
  14. ALL OTHER THERAPEUTIC PRODUCTS [Concomitant]
     Dosage: TEXT:1DF
     Route: 042
     Dates: start: 20030331, end: 20030331
  15. METOCLOPRAMIDE [Concomitant]
     Route: 042
     Dates: start: 20030329, end: 20030329
  16. METOCLOPRAMIDE [Concomitant]
     Route: 042
     Dates: start: 20030331, end: 20030331
  17. METOCLOPRAMIDE [Concomitant]
     Route: 042
     Dates: start: 20030407, end: 20030407
  18. SOLCOSERYL [Concomitant]
     Dosage: TEXT:1 DF
     Route: 042
     Dates: start: 20030329, end: 20030329
  19. SOLCOSERYL [Concomitant]
     Dosage: TEXT:1 DF
     Route: 042
     Dates: start: 20030331, end: 20030331
  20. SOLCOSERYL [Concomitant]
     Dosage: TEXT:1 DF
     Route: 042
     Dates: start: 20030407, end: 20030407
  21. DAIMON [Concomitant]
     Route: 042
     Dates: start: 20030329, end: 20030329
  22. DAIMON [Concomitant]
     Route: 042
     Dates: start: 20030331, end: 20030331
  23. DAIMON [Concomitant]
     Route: 042
     Dates: start: 20030407, end: 20030407
  24. VISCORIN [Concomitant]
     Route: 042
     Dates: start: 20030329, end: 20030329
  25. VISCORIN [Concomitant]
     Route: 042
     Dates: start: 20030331, end: 20030331
  26. VISCORIN [Concomitant]
     Route: 042
     Dates: start: 20030407, end: 20030407
  27. KN SOL. 3B [Concomitant]
     Dosage: TEXT:1 DF
     Route: 042
     Dates: start: 20030407, end: 20030407
  28. AMBROXOL [Concomitant]
     Indication: NASOPHARYNGITIS
     Route: 048
     Dates: start: 20030329, end: 20030404
  29. AMBROXOL [Concomitant]
     Route: 048
  30. AMIKACIN [Concomitant]
     Dosage: TEXT:1 DF
     Route: 030
     Dates: start: 20030329, end: 20030329
  31. METILON [Concomitant]
     Dosage: TEXT:1 DF
     Route: 030
     Dates: start: 20030329, end: 20030329
  32. METOCLOPRAMIDE [Concomitant]
     Dosage: TEXT:2 DF
     Route: 048
     Dates: start: 20030407

REACTIONS (1)
  - TOXIC EPIDERMAL NECROLYSIS [None]
